FAERS Safety Report 8963641 (Version 2)
Quarter: 2013Q1

REPORT INFORMATION
  Report Type: Spontaneous
  Country: JP (occurrence: JP)
  Receive Date: 20121214
  Receipt Date: 20130208
  Transmission Date: 20140127
  Serious: Yes (Other)
  Sender: FDA-Public Use
  Company Number: JP-EISAI INC-E3810-06112-SPO-JP

PATIENT
  Age: 93 Year
  Sex: Female

DRUGS (14)
  1. ACIPHEX (RABEPRAZOLE) [Suspect]
     Indication: GASTRIC ULCER
     Route: 048
     Dates: start: 20121022, end: 20121028
  2. ACIPHEX (RABEPRAZOLE) [Suspect]
     Route: 048
     Dates: start: 20120806, end: 20121021
  3. ZOSYN [Suspect]
     Indication: PYELONEPHRITIS
     Route: 042
     Dates: start: 20121020, end: 20121026
  4. ZOSYN [Suspect]
     Route: 042
     Dates: start: 20121012, end: 20121016
  5. CEFMETAZON [Suspect]
     Indication: PYELONEPHRITIS
     Route: 042
     Dates: start: 20120913, end: 20120918
  6. CEFMETAZON [Suspect]
     Route: 042
     Dates: start: 20120925, end: 20120928
  7. PREDONINE [Concomitant]
     Indication: PEMPHIGOID
     Route: 048
     Dates: start: 20120930, end: 20121027
  8. PREDONINE [Concomitant]
     Route: 048
     Dates: start: 20120814, end: 20120929
  9. PREDONINE [Concomitant]
     Route: 048
     Dates: start: 20121028, end: 20121124
  10. PREDONINE [Concomitant]
     Route: 048
     Dates: start: 20121125
  11. MUCOSOLVAN [Concomitant]
     Indication: PRODUCTIVE COUGH
     Route: 048
     Dates: start: 20111201
  12. MUCODYNE [Concomitant]
     Indication: PRODUCTIVE COUGH
     Route: 048
     Dates: start: 20111201
  13. GASTROM [Concomitant]
     Indication: GASTRIC ULCER
     Route: 048
     Dates: start: 20120806
  14. REBAMIPIDE [Concomitant]
     Indication: GASTRIC ULCER
     Route: 048
     Dates: start: 20120806

REACTIONS (1)
  - Diarrhoea [Recovering/Resolving]
